FAERS Safety Report 11685489 (Version 17)
Quarter: 2017Q2

REPORT INFORMATION
  Report Type: Spontaneous
  Country: US (occurrence: US)
  Receive Date: 20151030
  Receipt Date: 20170516
  Transmission Date: 20170829
  Serious: Yes (Congenital Anomaly, Other)
  Sender: FDA-Public Use
  Company Number: PHEH2015US022036

PATIENT
  Sex: Female

DRUGS (3)
  1. ZOFRAN [Suspect]
     Active Substance: ONDANSETRON HYDROCHLORIDE
     Indication: FOETAL EXPOSURE DURING PREGNANCY
     Route: 064
  2. ONDANSETRON [Suspect]
     Active Substance: ONDANSETRON
     Indication: FOETAL EXPOSURE DURING PREGNANCY
     Route: 064
  3. ONDANSETRON [Suspect]
     Active Substance: ONDANSETRON
     Indication: FOETAL EXPOSURE DURING PREGNANCY
     Dosage: MOTHER DOSE: 4 MG ONCE DAILY (QD)
     Route: 064

REACTIONS (37)
  - Aortic valve incompetence [Unknown]
  - Pain [Unknown]
  - Myalgia [Unknown]
  - Sinusitis [Unknown]
  - Jaundice neonatal [Unknown]
  - Croup infectious [Unknown]
  - Bronchiolitis [Unknown]
  - Emotional distress [Unknown]
  - Premature baby [Unknown]
  - Laceration [Unknown]
  - Dermatitis atopic [Unknown]
  - Constipation [Unknown]
  - Foetal exposure during pregnancy [Unknown]
  - Anhedonia [Unknown]
  - Cardiac murmur [Unknown]
  - Hand-foot-and-mouth disease [Unknown]
  - Upper respiratory tract infection [Unknown]
  - Heart disease congenital [Unknown]
  - Pneumonia mycoplasmal [Unknown]
  - Bundle branch block right [Unknown]
  - Injury [Unknown]
  - Pharyngitis [Unknown]
  - Teething [Unknown]
  - Otitis media [Unknown]
  - Cardiac failure congestive [Unknown]
  - Congenital anomaly [Unknown]
  - Cardiac ventricular disorder [Unknown]
  - Failure to thrive [Unknown]
  - Cardiomegaly [Unknown]
  - Bronchial hyperreactivity [Unknown]
  - Weight gain poor [Unknown]
  - Multiple congenital abnormalities [Unknown]
  - Ventricular septal defect [Unknown]
  - Left-to-right cardiac shunt [Unknown]
  - Tricuspid valve incompetence [Unknown]
  - Diarrhoea [Unknown]
  - Anxiety [Unknown]
